FAERS Safety Report 6923869-5 (Version None)
Quarter: 2010Q3

REPORT INFORMATION
  Report Type: 
  Country: None (occurrence: None)
  Receive Date: 20100813
  Receipt Date: 20100129
  Transmission Date: 20110219
  Serious: No
  Sender: FDA-Public Use
  Company Number: US-BRISTOL-MYERS SQUIBB COMPANY-14954978

PATIENT
  Age: 23 Year
  Sex: Male

DRUGS (3)
  1. REYATAZ [Suspect]
     Indication: HIV INFECTION
     Dates: start: 20090716, end: 20091118
  2. TRUVADA [Concomitant]
  3. NORVIR [Concomitant]

REACTIONS (1)
  - DYSPEPSIA [None]
